FAERS Safety Report 6941320-6 (Version None)
Quarter: 2010Q3

REPORT INFORMATION
  Report Type: 
  Country: None (occurrence: None)
  Receive Date: 20100825
  Receipt Date: 20100825
  Transmission Date: 20110219
  Serious: Yes (Other)
  Sender: FDA-Public Use
  Company Number: FR-ROXANE LABORATORIES, INC.-2010-DE-04421GD

PATIENT
  Age: 12 Year
  Sex: Female
  Weight: 31 kg

DRUGS (5)
  1. PREDNISONE [Suspect]
     Indication: IMMUNOSUPPRESSANT DRUG THERAPY
     Dosage: 25 MG
  2. TACROLIMUS [Suspect]
     Indication: IMMUNOSUPPRESSANT DRUG THERAPY
     Dosage: 8 MG
  3. MYCOPHENOLATE MOFETIL [Suspect]
     Indication: IMMUNOSUPPRESSANT DRUG THERAPY
     Dosage: 2 G
  4. EVEROLIMUS [Suspect]
     Indication: IMMUNOSUPPRESSANT DRUG THERAPY
     Dosage: 1.5 MG
  5. EVEROLIMUS [Suspect]
     Dosage: 5.5 MG

REACTIONS (4)
  - EPIDURAL LIPOMATOSIS [None]
  - HYPERTENSION [None]
  - ORAL HERPES [None]
  - URINARY TRACT INFECTION FUNGAL [None]
